FAERS Safety Report 8588224 (Version 3)
Quarter: 2012Q4

REPORT INFORMATION
  Report Type: Spontaneous
  Country: JP (occurrence: None)
  Receive Date: 20120523
  Receipt Date: 20120823
  Transmission Date: 20130627
  Serious: Yes (Hospitalization, Disabling)
  Sender: FDA-Public Use
  Company Number: JP-2012-15179

PATIENT
  Age: 73 Year
  Sex: Female
  Weight: 44 kg

DRUGS (24)
  1. SAMSCA [Suspect]
     Indication: CARDIAC FAILURE
     Route: 048
     Dates: start: 20111002
  2. SAMSCA [Suspect]
     Indication: CARDIAC FAILURE
     Dosage: QAM
     Route: 048
     Dates: start: 20120202
  3. CONCENTRATED RED CELLS (CONCENTRATED HUMAN RED BLOOD CELLS) INJECTION [Concomitant]
  4. PLETAAL (CILOSTAZOL) ORODISPERSIBLE TABLET [Concomitant]
  5. BAYASPIRIN (ACETYLSALICYLIC ACID) TABLET [Concomitant]
  6. AMLODIPINE (AMLODIPINE BESILATE) TABLET [Concomitant]
  7. LASIX (FUROSEMIDE) TABLET [Concomitant]
  8. MICARDIS (TELMISARTAN) TABLET [Concomitant]
  9. EQUA (VILDAGLIPTIN) TABLET [Concomitant]
  10. LANSOPRAZOLE (LANSOPRAZOLE) ORODISPERSIBLE TABLET [Concomitant]
  11. WARFARIN (WARFARIN SODIUM) TABLET [Concomitant]
  12. ERYTHROPOIETIN (ERYTHROPOIETIN) INJECTION [Concomitant]
  13. LIVALO (PITAVASTATIN CALCIUM) TABLET [Concomitant]
  14. SALOBEL (ALLOPURINOL) TABLET [Concomitant]
  15. FERROMIA (FERROUS SODIUM CITRATE) TABLET [Concomitant]
  16. ATARAX-P (HYDROXYZINE HYDROCHLORIDE) CAPSULE [Concomitant]
  17. MAGMITT (MAGNESIUM OXIDE) TABLET [Concomitant]
  18. POLARAMINE (DEXCHLORPHENIRAMINE MALEATE) TABLET [Concomitant]
  19. ALESION (EPINASTINE HYDROCHLORIDE) TABLET [Concomitant]
  20. ARGAMATE (CALCIUM POLYSTYRENE SULFONATE) ORAL GEL [Concomitant]
  21. PROPETO (WHITE SOFT PARAFFIN) OINTMENT [Concomitant]
  22. RESTAMIN (DIPHENHYDRAMINE) CREAM [Concomitant]
  23. MYSER (DIFLUPREDNATE) OINTMENT [Concomitant]
  24. POSTERISAN (ESCHERICHIA COLI, LYOPHILIZED, PHENOL) OINTMENT [Concomitant]

REACTIONS (1)
  - Anaemia [None]
